FAERS Safety Report 7898072-5 (Version None)
Quarter: 2011Q4

REPORT INFORMATION
  Report Type: 
  Country: None (occurrence: None)
  Receive Date: 20111107
  Receipt Date: 20111103
  Transmission Date: 20120403
  Serious: Yes (Other)
  Sender: FDA-Public Use
  Company Number: US-PFIZER INC-2011246984

PATIENT
  Sex: Female
  Weight: 73.016 kg

DRUGS (7)
  1. EFFEXOR XR [Suspect]
     Indication: DEPRESSION
     Dosage: 75 MG, DAILY
     Route: 048
     Dates: start: 20110101, end: 20110101
  2. TRAZODONE HCL [Suspect]
     Indication: INSOMNIA
     Dosage: 150 MG, DAILY
     Route: 048
     Dates: start: 20110801, end: 20110101
  3. ELAVIL [Concomitant]
     Indication: FIBROMYALGIA
     Dosage: 50 MG, DAILY
  4. EFFEXOR XR [Suspect]
     Dosage: 150 MG, DAILY
     Route: 048
     Dates: start: 20110101, end: 20110101
  5. EFFEXOR XR [Suspect]
     Indication: INSOMNIA
     Dosage: 150 MG, DAILY
     Route: 048
     Dates: start: 20040101, end: 20110801
  6. TRAZODONE HCL [Suspect]
     Indication: DEPRESSION
  7. PROGESTERONE [Concomitant]
     Indication: HOT FLUSH
     Dosage: UNK

REACTIONS (12)
  - DYSGRAPHIA [None]
  - EYE PAIN [None]
  - NERVOUSNESS [None]
  - TREMOR [None]
  - BALANCE DISORDER [None]
  - HYPOAESTHESIA [None]
  - VOMITING [None]
  - MENTAL IMPAIRMENT [None]
  - SPEECH DISORDER [None]
  - DISTURBANCE IN ATTENTION [None]
  - MENINGIOMA [None]
  - COORDINATION ABNORMAL [None]
